FAERS Safety Report 9321424 (Version 4)
Quarter: 2014Q1

REPORT INFORMATION
  Report Type: Spontaneous
  Country: SE (occurrence: None)
  Receive Date: 20130529
  Receipt Date: 20140221
  Transmission Date: 20141002
  Serious: Yes (Hospitalization)
  Sender: FDA-Public Use
  Company Number: AUR-APL-2013-04418

PATIENT
  Age: 66 Year
  Sex: Male

DRUGS (2)
  1. METFORMIN [Suspect]
     Indication: PRODUCT USED FOR UNKNOWN INDICATION
     Dosage: 3000 MG (1000 MG,3 IN 1 D)
  2. ALLOPURINOL (ALLOPURINOL) [Concomitant]

REACTIONS (22)
  - Dyspnoea [None]
  - Back pain [None]
  - Blood pressure increased [None]
  - Fatigue [None]
  - Nausea [None]
  - Vomiting [None]
  - Blood pressure decreased [None]
  - Loss of consciousness [None]
  - Vascular resistance systemic decreased [None]
  - Continuous haemodiafiltration [None]
  - No therapeutic response [None]
  - Oliguria [None]
  - Blood creatinine increased [None]
  - Toxicity to various agents [None]
  - Blood lactic acid increased [None]
  - Blood pH decreased [None]
  - Confusional state [None]
  - Vasodilatation [None]
  - Shock [None]
  - Lactic acidosis [None]
  - Memory impairment [None]
  - Renal failure acute [None]
